FAERS Safety Report 17053523 (Version 1)
Quarter: 2019Q4

REPORT INFORMATION
  Report Type: Spontaneous
  Country: CA (occurrence: CA)
  Receive Date: 20191120
  Receipt Date: 20191120
  Transmission Date: 20200122
  Serious: Yes (Death, Other)
  Sender: FDA-Public Use
  Company Number: CA-PFIZER INC-2019498397

PATIENT
  Age: 65 Year
  Sex: Female
  Weight: 68 kg

DRUGS (12)
  1. FERROUS SULPHATE [FERROUS SULFATE] [Concomitant]
     Active Substance: FERROUS SULFATE
     Indication: BREAST CANCER FEMALE
     Dosage: UNK
     Route: 042
  2. CANDESARTAN. [Concomitant]
     Active Substance: CANDESARTAN
     Dosage: UNK
  3. LASIX [Concomitant]
     Active Substance: FUROSEMIDE
     Dosage: UNK
  4. PANTOPRAZOLE MAGNESIUM [Concomitant]
     Active Substance: PANTOPRAZOLE MAGNESIUM
     Dosage: UNK
  5. IRBESARTAN. [Concomitant]
     Active Substance: IRBESARTAN
     Dosage: UNK
  6. ADALAT CC [Concomitant]
     Active Substance: NIFEDIPINE
     Dosage: UNK
  7. PACLITAXEL. [Suspect]
     Active Substance: PACLITAXEL
     Indication: BREAST CANCER FEMALE
     Dosage: UNK
     Route: 042
  8. ATIVAN [Concomitant]
     Active Substance: LORAZEPAM
     Dosage: UNK
  9. EMEND [Concomitant]
     Active Substance: APREPITANT
     Dosage: UNK
  10. LIPITOR [Concomitant]
     Active Substance: ATORVASTATIN CALCIUM
     Dosage: UNK
  11. FELODIPINE SANDOZ [Concomitant]
     Active Substance: FELODIPINE
     Indication: BREAST CANCER FEMALE
     Dosage: UNK
  12. HYDROCHLOROTHIAZIDE. [Concomitant]
     Active Substance: HYDROCHLOROTHIAZIDE
     Dosage: UNK

REACTIONS (5)
  - Altered state of consciousness [Fatal]
  - Anaphylactic reaction [Fatal]
  - Coronary artery occlusion [Fatal]
  - Seizure [Fatal]
  - Cardiac arrest [Fatal]
